FAERS Safety Report 24642159 (Version 2)
Quarter: 2025Q1

REPORT INFORMATION
  Report Type: Spontaneous
  Country: KR (occurrence: KR)
  Receive Date: 20241120
  Receipt Date: 20250122
  Transmission Date: 20250408
  Serious: No
  Sender: REGENERON
  Company Number: KR-BAYER-2024A164651

PATIENT

DRUGS (1)
  1. EYLEA HD [Suspect]
     Active Substance: AFLIBERCEPT
     Indication: Product used for unknown indication

REACTIONS (1)
  - Eye inflammation [Unknown]
